FAERS Safety Report 7986653-X (Version None)
Quarter: 2011Q4

REPORT INFORMATION
  Report Type: 
  Country: None (occurrence: None)
  Receive Date: 20111216
  Receipt Date: 20110211
  Transmission Date: 20120403
  Serious: No
  Sender: FDA-Public Use
  Company Number: US-BRISTOL-MYERS SQUIBB COMPANY-15546807

PATIENT
  Age: 49 Year
  Sex: Male

DRUGS (1)
  1. ABILIFY [Suspect]
     Dosage: FOR THE FIRST TIME
     Dates: start: 20110201

REACTIONS (2)
  - RESTLESSNESS [None]
  - PYREXIA [None]
